FAERS Safety Report 9528314 (Version 1)
Quarter: 2013Q3

REPORT INFORMATION
  Report Type: Spontaneous
  Country: US (occurrence: US)
  Receive Date: 20130917
  Receipt Date: 20130917
  Transmission Date: 20140515
  Serious: Yes (Other)
  Sender: FDA-Public Use
  Company Number: US-PFIZER INC-2013265574

PATIENT
  Age: 33 Year
  Sex: Female
  Weight: 46.26 kg

DRUGS (4)
  1. SUTENT [Suspect]
     Indication: RENAL CANCER
     Dosage: 50 MG, 1X/DAY
     Dates: start: 201305, end: 2013
  2. PROTONIX [Concomitant]
     Indication: GASTROOESOPHAGEAL REFLUX DISEASE
     Dosage: 40 MG, 1X/DAY
  3. ZOLOFT [Concomitant]
     Indication: ANXIETY
     Dosage: 100 MG, 1X/DAY
  4. ZOLOFT [Concomitant]
     Indication: DEPRESSION

REACTIONS (6)
  - Vaginal haemorrhage [Recovered/Resolved]
  - Oral pain [Recovered/Resolved]
  - Nasal discomfort [Recovered/Resolved]
  - Migraine [Recovered/Resolved]
  - Full blood count decreased [Recovered/Resolved]
  - Fatigue [Recovered/Resolved]
